FAERS Safety Report 10067602 (Version 2)
Quarter: 2014Q2

REPORT INFORMATION
  Report Type: Spontaneous
  Country: US (occurrence: US)
  Receive Date: 20140409
  Receipt Date: 20140411
  Transmission Date: 20141212
  Serious: Yes (Other)
  Sender: FDA-Public Use
  Company Number: US-PERRIGO-14US003487

PATIENT
  Age: 60 Year
  Sex: Female
  Weight: 88.89 kg

DRUGS (8)
  1. NAPROXEN SODIUM 220 MG 368 [Suspect]
     Indication: PAIN
     Dosage: 440 MG, SINGLE
     Route: 048
     Dates: start: 20140328, end: 20140328
  2. WELLBUTRIN [Suspect]
     Indication: DEPRESSED MOOD
     Dosage: UNK, UNK
     Route: 048
     Dates: start: 20140326
  3. TRAZODONE [Suspect]
     Indication: SLEEP DISORDER
     Dosage: UNK,UNK
     Route: 048
     Dates: start: 20140326
  4. RISPERIDONE [Suspect]
     Indication: PSYCHOTIC DISORDER
     Dosage: UNK,UNK
     Route: 065
     Dates: start: 20140326
  5. METFORMIN [Concomitant]
     Indication: DIABETES MELLITUS
     Dosage: UNK, UNK
     Route: 048
  6. CITALOPRAM [Concomitant]
     Indication: AFFECTIVE DISORDER
     Dosage: UNK, UNK
     Route: 048
  7. LISINOPRIL [Concomitant]
     Indication: HYPERTENSION
     Dosage: UNK,UNK
     Route: 048
     Dates: start: 2004
  8. LOVASTATIN [Concomitant]
     Indication: BLOOD CHOLESTEROL INCREASED
     Dosage: UNK, UNK
     Route: 048
     Dates: start: 2004

REACTIONS (4)
  - Hypoaesthesia [Unknown]
  - Paralysis [Unknown]
  - Fall [Unknown]
  - Drug interaction [Recovered/Resolved]
